FAERS Safety Report 7548565-5 (Version None)
Quarter: 2011Q2

REPORT INFORMATION
  Report Type: 
  Country: None (occurrence: None)
  Receive Date: 20110608
  Receipt Date: 20110531
  Transmission Date: 20111010
  Serious: Yes (Death, Hospitalization, Other)
  Sender: FDA-Public Use
  Company Number: 2011AL000008

PATIENT
  Age: 60 Year
  Sex: Female
  Weight: 55.1 kg

DRUGS (7)
  1. PANCRELIPASE [Concomitant]
  2. HYDROCODONE [Concomitant]
  3. DRONABINOL [Concomitant]
  4. PRALATREXATE (PRALATREXATE) [Suspect]
     Indication: BILE DUCT CANCER
     Dosage: 30 MG/M2, IV
     Route: 042
     Dates: start: 20110216, end: 20110223
  5. METHOCARBAMOL [Concomitant]
  6. PROCHLORPERAZINE TAB [Concomitant]
  7. OXYCONTIN [Concomitant]

REACTIONS (11)
  - ABDOMINAL DISTENSION [None]
  - DYSPNOEA EXERTIONAL [None]
  - HYPOALBUMINAEMIA [None]
  - METASTATIC PAIN [None]
  - FATIGUE [None]
  - NAUSEA [None]
  - DECREASED APPETITE [None]
  - ANAEMIA [None]
  - BILIARY CANCER METASTATIC [None]
  - ASTHENIA [None]
  - NEOPLASM PROGRESSION [None]
